FAERS Safety Report 5655332-6 (Version None)
Quarter: 2008Q1

REPORT INFORMATION
  Report Type: 
  Country: None (occurrence: None)
  Receive Date: 20080307
  Receipt Date: 20080228
  Transmission Date: 20080703
  Serious: Yes (Hospitalization)
  Sender: FDA-Public Use
  Company Number: FR-ABBOTT-06P-056-0328857-01

PATIENT
  Sex: Female

DRUGS (14)
  1. HUMIRA [Suspect]
     Indication: RHEUMATOID ARTHRITIS
     Route: 058
     Dates: start: 20040106, end: 20051115
  2. COMMERCIAL HUMIRA [Concomitant]
     Indication: RHEUMATOID ARTHRITIS
     Route: 058
     Dates: start: 20031110
  3. WARFARIN SODIUM [Concomitant]
     Indication: ANTICOAGULANT THERAPY
     Dates: start: 20051201
  4. OMEPRAZOLE [Concomitant]
     Indication: GASTROOESOPHAGEAL REFLUX DISEASE
     Dates: start: 19990101
  5. LERCANIDIPINE HYDROCHLORIDE [Concomitant]
     Indication: HYPERTENSION
  6. IRBESARTAN [Concomitant]
     Indication: HYPERTENSION
     Dates: start: 19960101
  7. RILMENIDINE [Concomitant]
     Indication: HYPERTENSION
  8. TIANEPTINE [Concomitant]
     Indication: HYPERTENSION
  9. CLONAZEPAM [Concomitant]
     Indication: PARAESTHESIA
  10. COUMADIN [Concomitant]
     Indication: PHLEBITIS
     Dates: start: 20051101
  11. RUTOSIDE [Concomitant]
     Indication: PHLEBITIS
     Dates: start: 20051101
  12. GINKGO BILOBA EXTRACT [Concomitant]
     Indication: DRUG USE FOR UNKNOWN INDICATION
  13. LEFLUNOMIDE [Concomitant]
     Indication: RHEUMATOID ARTHRITIS
     Dates: start: 20051201
  14. METHYLPREDNISOLONE [Concomitant]
     Indication: RHEUMATOID ARTHRITIS
     Dates: start: 20060201

REACTIONS (1)
  - DIARRHOEA [None]
